FAERS Safety Report 4678062-6 (Version None)
Quarter: 2005Q2

REPORT INFORMATION
  Report Type: 
  Country: None (occurrence: None)
  Receive Date: 20050601
  Receipt Date: 20050519
  Transmission Date: 20051028
  Serious: Yes (Life-Threatening, Hospitalization)
  Sender: FDA-Public Use
  Company Number: US-SANOFI-SYNTHELABO-A03200501506

PATIENT
  Age: 21 Year
  Sex: Male

DRUGS (18)
  1. PRIMAQUINE [Suspect]
     Route: 048
     Dates: start: 20030101
  2. PRIMAQUINE [Suspect]
     Route: 048
     Dates: start: 20030101
  3. PRIMAQUINE [Suspect]
     Route: 048
     Dates: start: 20030626, end: 20030701
  4. PRIMAQUINE [Suspect]
     Route: 048
     Dates: start: 20030626, end: 20030701
  5. PRIMAQUINE [Suspect]
     Route: 048
     Dates: start: 20030920, end: 20031001
  6. PRIMAQUINE [Suspect]
     Route: 048
     Dates: start: 20030920, end: 20031001
  7. CHLOROQUINE PHOSPHATE [Concomitant]
     Route: 048
     Dates: start: 20030626, end: 20030626
  8. CHLOROQUINE PHOSPHATE [Concomitant]
     Route: 048
     Dates: start: 20030920, end: 20030920
  9. CHLOROQUINE PHOSPHATE [Concomitant]
     Dosage: FOR 2 DAYS
     Route: 048
     Dates: start: 20030901, end: 20030901
  10. DOXYCYCLINE [Concomitant]
     Dosage: UNK
     Route: 048
     Dates: start: 20030101, end: 20030101
  11. DOXYCYCLINE [Concomitant]
     Dosage: FOR 3 DAYS
     Route: 042
     Dates: start: 20030626, end: 20030628
  12. DOXYCYCLINE [Concomitant]
     Dosage: FOR 3 DAYS
     Route: 042
     Dates: start: 20030626, end: 20030628
  13. DOXYCYCLINE [Concomitant]
     Dosage: UNK
     Route: 048
     Dates: start: 20030101, end: 20030101
  14. QUINIDINE HCL [Concomitant]
     Dosage: 0.2 MG PER KG IV QD
     Route: 042
     Dates: start: 20030626, end: 20030101
  15. MEFLOQUINE [Concomitant]
     Dosage: WEEKLY UNK
     Route: 048
     Dates: start: 20030101, end: 20030101
  16. MEFLOQUINE [Concomitant]
     Dosage: WEEKLY UNK
     Route: 048
     Dates: start: 20030101, end: 20030101
  17. MEFLOQUINE [Concomitant]
     Route: 048
     Dates: start: 20030626, end: 20030626
  18. MEFLOQUINE [Concomitant]
     Route: 048
     Dates: start: 20030626, end: 20030626

REACTIONS (11)
  - ACUTE RESPIRATORY DISTRESS SYNDROME [None]
  - ANAEMIA [None]
  - BAROTRAUMA [None]
  - DRUG INEFFECTIVE [None]
  - GENERAL PHYSICAL HEALTH DETERIORATION [None]
  - HYPOTENSION [None]
  - MALARIA [None]
  - MALARIA PROPHYLAXIS [None]
  - PNEUMOTHORAX [None]
  - TACHYCARDIA [None]
  - THROMBOCYTOPENIA [None]
